FAERS Safety Report 18001292 (Version 1)
Quarter: 2020Q3

REPORT INFORMATION
  Report Type: Spontaneous
  Country: ES (occurrence: ES)
  Receive Date: 20200709
  Receipt Date: 20200709
  Transmission Date: 20201105
  Serious: Yes (Hospitalization)
  Sender: FDA-Public Use
  Company Number: NVSC2020ES186879

PATIENT
  Age: 86 Year
  Sex: Female

DRUGS (7)
  1. TIAMAZOL [Concomitant]
     Active Substance: METHIMAZOLE
     Indication: PRODUCT USED FOR UNKNOWN INDICATION
     Dosage: UNK
     Route: 065
  2. HIDROXIZINA [Suspect]
     Active Substance: HYDROXYZINE HYDROCHLORIDE
     Indication: PRURITUS
     Dosage: 25 MG, Q8H
     Route: 048
     Dates: start: 20181212
  3. ETORICOXIB. [Suspect]
     Active Substance: ETORICOXIB
     Indication: BACK PAIN
     Dosage: 30 MG, Q24H
     Route: 048
     Dates: start: 20200523
  4. IBUPROFEN. [Suspect]
     Active Substance: IBUPROFEN
     Indication: ARTHRALGIA
     Dosage: 600 MG, Q12H
     Route: 048
     Dates: start: 20191211
  5. PARACETAMOL [Concomitant]
     Active Substance: ACETAMINOPHEN
     Indication: PRODUCT USED FOR UNKNOWN INDICATION
     Dosage: UNK
     Route: 065
  6. AMERIDE (AMILORIDE HYDROCHLORIDE\HYDROCHLOROTHIAZIDE) [Suspect]
     Active Substance: AMILORIDE HYDROCHLORIDE\HYDROCHLOROTHIAZIDE
     Indication: HYPERTENSIVE NEPHROPATHY
     Dosage: 5 MG, Q24H (5 MG/50 MG COMPRIMIDOS, 60 COMPRIMIDOS)
     Route: 065
     Dates: start: 20070609
  7. ENEAS [Suspect]
     Active Substance: ENALAPRIL MALEATE\NITRENDIPINE
     Indication: NEPHROPATHY
     Dosage: 10 MG, Q24H (10 MG/20 MG COMPRIMIDOS, 30 COMPRIMIDOS)
     Route: 065
     Dates: start: 20070609

REACTIONS (3)
  - Acute kidney injury [Recovering/Resolving]
  - Cardiac failure [Recovering/Resolving]
  - Acute coronary syndrome [Not Recovered/Not Resolved]

NARRATIVE: CASE EVENT DATE: 20200525
